FAERS Safety Report 18500826 (Version 1)
Quarter: 2020Q4

REPORT INFORMATION
  Report Type: Report from Study
  Country: US (occurrence: US)
  Receive Date: 20201113
  Receipt Date: 20201113
  Transmission Date: 20210114
  Serious: Yes (Hospitalization)
  Sender: FDA-Public Use
  Company Number: US-TAKEDA-US202031991

PATIENT
  Age: 33 Year
  Sex: Female
  Weight: 57 kg

DRUGS (22)
  1. TEDUGLUTIDE [Suspect]
     Active Substance: TEDUGLUTIDE
     Dosage: 2.69 MILLIGRAM (0.05 MILLIGRAM/KILOGRAM DAILY DOSE, 7 DOSES PER WEEK), OTHER
     Route: 065
     Dates: start: 20191121
  2. TEDUGLUTIDE [Suspect]
     Active Substance: TEDUGLUTIDE
     Dosage: 2.69 MILLIGRAM (0.05 MILLIGRAM/KILOGRAM DAILY DOSE, 7 DOSES PER WEEK), OTHER
     Route: 065
     Dates: start: 20191121
  3. TEDUGLUTIDE [Suspect]
     Active Substance: TEDUGLUTIDE
     Dosage: 2.69 MILLIGRAM (0.05 MILLIGRAM/KILOGRAM DAILY DOSE, 7 DOSES PER WEEK), OTHER
     Route: 065
     Dates: start: 20191121
  4. TEDUGLUTIDE [Suspect]
     Active Substance: TEDUGLUTIDE
     Indication: SHORT-BOWEL SYNDROME
     Dosage: 2.67 MILLIGRAM (0.05 MILLIGRAM/KILOGRAM DAILY DOSE, 7 DOSES PER WEEK), OTHER
     Route: 065
     Dates: start: 20180615, end: 201901
  5. TEDUGLUTIDE [Suspect]
     Active Substance: TEDUGLUTIDE
     Dosage: 2.69 MILLIGRAM (0.05 MILLIGRAM/KILOGRAM DAILY DOSE, 7 DOSES PER WEEK), OTHER
     Route: 065
     Dates: start: 201904, end: 201909
  6. TEDUGLUTIDE [Suspect]
     Active Substance: TEDUGLUTIDE
     Indication: SHORT-BOWEL SYNDROME
     Dosage: 2.67 MILLIGRAM (0.05 MILLIGRAM/KILOGRAM DAILY DOSE, 7 DOSES PER WEEK), OTHER
     Route: 065
     Dates: start: 20180615, end: 201901
  7. TEDUGLUTIDE [Suspect]
     Active Substance: TEDUGLUTIDE
     Dosage: 3.2 MILLIGRAM (0.05 MILLIGRAM/KILOGRAM DAILY DOSE, 7 DOSES PER WEEK), OTHER
     Route: 065
     Dates: start: 201902, end: 201904
  8. TEDUGLUTIDE [Suspect]
     Active Substance: TEDUGLUTIDE
     Dosage: 2.69 MILLIGRAM (0.05 MILLIGRAM/KILOGRAM DAILY DOSE, 7 DOSES PER WEEK), OTHER
     Route: 065
     Dates: start: 20191121
  9. LOPERAMIDE [Concomitant]
     Active Substance: LOPERAMIDE
     Indication: DIARRHOEA
  10. OPIUM TINCTURE [Concomitant]
     Active Substance: MORPHINE
     Indication: DIARRHOEA
  11. FAMOTIDINE. [Concomitant]
     Active Substance: FAMOTIDINE
     Indication: GASTROOESOPHAGEAL REFLUX DISEASE
  12. TEDUGLUTIDE [Suspect]
     Active Substance: TEDUGLUTIDE
     Indication: SHORT-BOWEL SYNDROME
     Dosage: 2.67 MILLIGRAM (0.05 MILLIGRAM/KILOGRAM DAILY DOSE, 7 DOSES PER WEEK), OTHER
     Route: 065
     Dates: start: 20180615, end: 201901
  13. TEDUGLUTIDE [Suspect]
     Active Substance: TEDUGLUTIDE
     Dosage: 3.2 MILLIGRAM (0.05 MILLIGRAM/KILOGRAM DAILY DOSE, 7 DOSES PER WEEK), OTHER
     Route: 065
     Dates: start: 201902, end: 201904
  14. TEDUGLUTIDE [Suspect]
     Active Substance: TEDUGLUTIDE
     Dosage: 3.2 MILLIGRAM (0.05 MILLIGRAM/KILOGRAM DAILY DOSE, 7 DOSES PER WEEK), OTHER
     Route: 065
     Dates: start: 201902, end: 201904
  15. LOMOTIL [Concomitant]
     Active Substance: ATROPINE SULFATE\DIPHENOXYLATE HYDROCHLORIDE
     Indication: PRODUCT USED FOR UNKNOWN INDICATION
  16. TEDUGLUTIDE [Suspect]
     Active Substance: TEDUGLUTIDE
     Indication: SHORT-BOWEL SYNDROME
     Dosage: 2.67 MILLIGRAM (0.05 MILLIGRAM/KILOGRAM DAILY DOSE, 7 DOSES PER WEEK), OTHER
     Route: 065
     Dates: start: 20180615, end: 201901
  17. TEDUGLUTIDE [Suspect]
     Active Substance: TEDUGLUTIDE
     Dosage: 3.2 MILLIGRAM (0.05 MILLIGRAM/KILOGRAM DAILY DOSE, 7 DOSES PER WEEK), OTHER
     Route: 065
     Dates: start: 201902, end: 201904
  18. RIFAXIMIN. [Concomitant]
     Active Substance: RIFAXIMIN
     Indication: DIARRHOEA
  19. TPN [AMINO ACIDS NOS;CARBOHYDRATES NOS;MINERALS NOS;VITAMINS NOS] [Concomitant]
     Active Substance: AMINO ACIDS\CARBOHYDRATES\MINERALS\VITAMINS
     Indication: PRODUCT USED FOR UNKNOWN INDICATION
  20. TEDUGLUTIDE [Suspect]
     Active Substance: TEDUGLUTIDE
     Dosage: 2.69 MILLIGRAM (0.05 MILLIGRAM/KILOGRAM DAILY DOSE, 7 DOSES PER WEEK), OTHER
     Route: 065
     Dates: start: 201904, end: 201909
  21. TEDUGLUTIDE [Suspect]
     Active Substance: TEDUGLUTIDE
     Dosage: 2.69 MILLIGRAM (0.05 MILLIGRAM/KILOGRAM DAILY DOSE, 7 DOSES PER WEEK), OTHER
     Route: 065
     Dates: start: 201904, end: 201909
  22. TEDUGLUTIDE [Suspect]
     Active Substance: TEDUGLUTIDE
     Dosage: 2.69 MILLIGRAM (0.05 MILLIGRAM/KILOGRAM DAILY DOSE, 7 DOSES PER WEEK), OTHER
     Route: 065
     Dates: start: 201904, end: 201909

REACTIONS (1)
  - Lactic acidosis [Recovering/Resolving]

NARRATIVE: CASE EVENT DATE: 202004
